FAERS Safety Report 4674113-3 (Version None)
Quarter: 2005Q2

REPORT INFORMATION
  Report Type: 
  Country: None (occurrence: None)
  Receive Date: 20050524
  Receipt Date: 20050524
  Transmission Date: 20051028
  Serious: Yes (Life-Threatening, Congenital Anomaly)
  Sender: FDA-Public Use
  Company Number: None

PATIENT
  Age: 46 Year
  Sex: Male
  Weight: 122.4712 kg

DRUGS (1)
  1. PAXIL [Suspect]
     Dosage: 80 MG 1/2 TABS @ BED ORAL
     Route: 048
     Dates: start: 19980323, end: 20050308

REACTIONS (4)
  - DEPRESSION [None]
  - FATIGUE [None]
  - HEADACHE [None]
  - TREMOR [None]
